FAERS Safety Report 24800147 (Version 1)
Quarter: 2025Q1

REPORT INFORMATION
  Report Type: Spontaneous
  Country: GB (occurrence: GB)
  Receive Date: 20250102
  Receipt Date: 20250102
  Transmission Date: 20250408
  Serious: Yes (Other)
  Sender: MYLAN
  Company Number: GB-MHRA-TPP25246364C12816622YC1734430415318

PATIENT
  Age: 92 Year
  Sex: Female
  Weight: 57 kg

DRUGS (12)
  1. RIVASTIGMINE [Suspect]
     Active Substance: RIVASTIGMINE
     Indication: Product used for unknown indication
     Dosage: 9.5 MILLIGRAM, QD (9.5MG PER 24 HOURS APPLY ONE PATCH AS DIRECTED TO THE SKIN ONCE DAILY
     Route: 062
     Dates: start: 20241119
  2. ISPAGHULA EXTRACT\PSYLLIUM [Concomitant]
     Active Substance: HERBALS\PLANTAGO OVATA SEED\PLANTAGO SEED
     Indication: Ill-defined disorder
     Dosage: 1 DOSAGE FORM, QD (TAKE THE CONTENTS OF ONE SACHET ONCE DAILY)
     Route: 065
     Dates: start: 20241025
  3. CLOBETASONE BUTYRATE [Concomitant]
     Active Substance: CLOBETASONE BUTYRATE
     Indication: Ill-defined disorder
     Dosage: UNK, QD (APPLY SMALL AMOUNT ONCE DAILY TO EFFECTED AREAS)
     Route: 065
     Dates: start: 20241125, end: 20241209
  4. RIVASTIGMINE [Concomitant]
     Active Substance: RIVASTIGMINE
     Indication: Ill-defined disorder
     Dosage: 1 DOSAGE FORM, QD (APPLY)
     Route: 065
     Dates: start: 20241125, end: 20241209
  5. APIXABAN [Concomitant]
     Active Substance: APIXABAN
     Indication: Ill-defined disorder
     Dosage: 1 DOSAGE FORM, QOD (TO HELP PREVENT BLO)
     Route: 065
     Dates: start: 20240718
  6. BISOPROLOL [Concomitant]
     Active Substance: BISOPROLOL
     Indication: Ill-defined disorder
     Dosage: 1 DOSAGE FORM, QD
     Route: 065
     Dates: start: 20240719
  7. FUROSEMIDE [Concomitant]
     Active Substance: FUROSEMIDE
     Indication: Ill-defined disorder
     Dosage: 1 DOSAGE FORM, QD (EACH MORNING)
     Route: 065
     Dates: start: 20240805
  8. STRIVIT D3 [Concomitant]
     Indication: Ill-defined disorder
     Dosage: 1 DOSAGE FORM, QD
     Route: 065
     Dates: start: 20240805
  9. MINERAL OIL\PARAFFIN [Concomitant]
     Active Substance: MINERAL OIL\PARAFFIN
     Indication: Ill-defined disorder
     Route: 065
     Dates: start: 20241125
  10. MINERAL OIL\PARAFFIN [Concomitant]
     Active Substance: MINERAL OIL\PARAFFIN
     Indication: Dry skin
  11. LOSARTAN [Concomitant]
     Active Substance: LOSARTAN
     Indication: Ill-defined disorder
     Dosage: 1 DOSAGE FORM, QD
     Route: 065
     Dates: start: 20240805, end: 20241002
  12. DONEPEZIL HYDROCHLORIDE [Concomitant]
     Active Substance: DONEPEZIL HYDROCHLORIDE
     Indication: Ill-defined disorder
     Dosage: 1 DOSAGE FORM, QD  (EACH EVENING)
     Route: 065
     Dates: start: 20240919, end: 20241001

REACTIONS (1)
  - Dermatitis contact [Recovering/Resolving]
